FAERS Safety Report 4917489-1 (Version None)
Quarter: 2006Q1

REPORT INFORMATION
  Report Type: 
  Country: None (occurrence: None)
  Receive Date: 20060221
  Receipt Date: 20060210
  Transmission Date: 20060701
  Serious: Yes (Hospitalization, Other)
  Sender: FDA-Public Use
  Company Number: US-JNJFOC-20040601815

PATIENT
  Sex: Female
  Weight: 65 kg

DRUGS (24)
  1. DURAGESIC-100 [Suspect]
     Route: 062
  2. DURAGESIC-100 [Suspect]
     Route: 062
  3. DURAGESIC-100 [Suspect]
     Route: 062
  4. GLYBURIDE [Concomitant]
     Route: 048
  5. FEOSOL [Concomitant]
     Route: 048
  6. PREMARIN [Concomitant]
  7. VICODIN [Concomitant]
     Route: 048
  8. VICODIN [Concomitant]
     Route: 048
  9. PLAVIX [Concomitant]
  10. ASCORBIC ACID [Concomitant]
  11. PROTONIX [Concomitant]
  12. TYLENOL [Concomitant]
     Dosage: AS NECESSARY
  13. DITROPAN [Concomitant]
  14. NITRO-DUR [Concomitant]
     Dosage: REMOVED AT BEDTIME
     Route: 062
  15. COZAAR [Concomitant]
  16. LASIX [Concomitant]
  17. PAXIL [Concomitant]
  18. ZEBETA [Concomitant]
  19. NEXIUM [Concomitant]
  20. OXYTROL [Concomitant]
     Route: 062
  21. NORVASC [Concomitant]
  22. LIPITOR [Concomitant]
  23. PRILOSEC [Concomitant]
  24. HYDROXYPROPYL METHYLCELL [Concomitant]
     Route: 047

REACTIONS (34)
  - ANAEMIA [None]
  - ANGINA UNSTABLE [None]
  - ARTHRALGIA [None]
  - ARTHROPATHY [None]
  - ASTHENIA [None]
  - ATRIOVENTRICULAR BLOCK FIRST DEGREE [None]
  - BLOOD PRESSURE DECREASED [None]
  - BODY TEMPERATURE DECREASED [None]
  - BRADYCARDIA [None]
  - CARDIAC MURMUR [None]
  - CAROTID BRUIT [None]
  - COLONIC POLYP [None]
  - CONFUSIONAL STATE [None]
  - DEVICE FAILURE [None]
  - DIVERTICULUM [None]
  - DIZZINESS [None]
  - ELECTROCARDIOGRAM T WAVE ABNORMAL [None]
  - FALL [None]
  - GASTROINTESTINAL HAEMORRHAGE [None]
  - HALLUCINATIONS, MIXED [None]
  - INJURY [None]
  - IRON DEFICIENCY ANAEMIA [None]
  - JOINT INJURY [None]
  - MUSCULAR WEAKNESS [None]
  - MYOCARDIAL INFARCTION [None]
  - NIGHTMARE [None]
  - PAIN [None]
  - PHARMACEUTICAL PRODUCT COMPLAINT [None]
  - QRS AXIS ABNORMAL [None]
  - RENAL FAILURE [None]
  - RESPIRATORY RATE INCREASED [None]
  - SKIN INJURY [None]
  - SWELLING [None]
  - WRIST FRACTURE [None]
